FAERS Safety Report 16017795 (Version 1)
Quarter: 2019Q1

REPORT INFORMATION
  Report Type: Spontaneous
  Country: US (occurrence: US)
  Receive Date: 20190228
  Receipt Date: 20190228
  Transmission Date: 20190418
  Serious: No
  Sender: FDA-Public Use
  Company Number: US-BAYER-2019-042199

PATIENT
  Age: 26 Year
  Sex: Female
  Weight: 111 kg

DRUGS (2)
  1. ALEVE PM [Suspect]
     Active Substance: DIPHENHYDRAMINE HYDROCHLORIDE\NAPROXEN SODIUM
     Indication: INFLUENZA LIKE ILLNESS
     Dosage: 2 DF, QD
     Route: 048
     Dates: start: 20190226
  2. ALEVE [Suspect]
     Active Substance: NAPROXEN SODIUM
     Indication: INFLUENZA LIKE ILLNESS
     Dosage: 2 DF, QD
     Route: 048
     Dates: start: 20190227

REACTIONS (4)
  - Product use in unapproved indication [Unknown]
  - Off label use [None]
  - Product prescribing error [Unknown]
  - Incorrect dose administered [Unknown]

NARRATIVE: CASE EVENT DATE: 20190226
